FAERS Safety Report 8767576 (Version 1)
Quarter: 2012Q4

REPORT INFORMATION
  Report Type: 
  Country: NL (occurrence: NL)
  Receive Date: 20120904
  Receipt Date: 20120904
  Transmission Date: 20130627
  Serious: Yes (Hospitalization)
  Sender: FDA-Public Use
  Company Number: NL-PFIZER INC-2012212458

PATIENT
  Age: 53 Year
  Sex: Female
  Weight: 76 kg

DRUGS (6)
  1. GENOTROPIN [Suspect]
     Dosage: 0.7 mg, 1xday, 7injections/week
     Route: 058
     Dates: start: 20040825
  2. ANILERIDINE [Concomitant]
     Indication: OEDEMA
     Dosage: UNK
     Dates: start: 19940101
  3. HYDROCHLOROTHIAZIDE [Concomitant]
     Indication: OEDEMA
     Dosage: UNK
     Dates: start: 19940101
  4. DIOVAN [Concomitant]
     Indication: HYPERTENSION
     Dosage: UNK
     Dates: start: 20040107
  5. LEVOTHYROXINE [Concomitant]
     Indication: BLOOD THYROID STIMULATING HORMONE DECREASED
     Dosage: UNK
     Dates: start: 20031008
  6. LEVOTHYROXINE [Concomitant]
     Indication: PRIMARY HYPOTHYROIDISM

REACTIONS (1)
  - Mammoplasty [Unknown]
